FAERS Safety Report 24630628 (Version 1)
Quarter: 2024Q4

REPORT INFORMATION
  Report Type: Spontaneous
  Country: US (occurrence: US)
  Receive Date: 20241118
  Receipt Date: 20241118
  Transmission Date: 20250115
  Serious: Yes (Other)
  Sender: AMGEN
  Company Number: US-AMGEN-USASP2024221488

PATIENT
  Age: 62 Year
  Sex: Female

DRUGS (1)
  1. RITUXIMAB [Suspect]
     Active Substance: RITUXIMAB
     Indication: Splenic marginal zone lymphoma
     Dosage: UNK
     Route: 065

REACTIONS (6)
  - Sjogren^s syndrome [Unknown]
  - Acquired C1 inhibitor deficiency [Unknown]
  - Treatment failure [Unknown]
  - Splenomegaly [Unknown]
  - Hepatomegaly [Unknown]
  - Pancreatic cyst [Unknown]
